FAERS Safety Report 5630744-5 (Version None)
Quarter: 2008Q1

REPORT INFORMATION
  Report Type: 
  Country: None (occurrence: None)
  Receive Date: 20080219
  Receipt Date: 20080208
  Transmission Date: 20080703
  Serious: Yes (Other)
  Sender: FDA-Public Use
  Company Number: US-JNJFOC-20080203854

PATIENT
  Age: 85 Year
  Sex: Female

DRUGS (10)
  1. TRAMADOL HCL [Suspect]
     Indication: PAIN
     Dosage: EVERY 6 HOURS AS NEEDED
     Route: 065
  2. OXYCODONE HYDROCHLORIDE AND ACETAMINOPHEN [Suspect]
     Dosage: 5/500 MG
     Route: 065
  3. OXYCODONE HYDROCHLORIDE AND ACETAMINOPHEN [Suspect]
     Dosage: 7.5/750 MG
     Route: 065
  4. OXYCODONE HYDROCHLORIDE AND ACETAMINOPHEN [Suspect]
     Dosage: 10/1000 MG
     Route: 065
  5. OXYCODONE HYDROCHLORIDE AND ACETAMINOPHEN [Suspect]
     Indication: PAIN
     Dosage: 5/500 MG
     Route: 065
  6. NIFEDIPINE [Concomitant]
     Route: 065
  7. DOXAZOSIN [Concomitant]
     Route: 065
  8. ASPIRIN [Concomitant]
     Route: 065
  9. HYDROCHLOROTHIAZIDE [Concomitant]
     Route: 065
  10. LORATADINE [Concomitant]
     Route: 065

REACTIONS (3)
  - NAUSEA [None]
  - VOMITING [None]
  - WEIGHT DECREASED [None]
